FAERS Safety Report 4931798-1 (Version None)
Quarter: 2006Q1

REPORT INFORMATION
  Report Type: 
  Country: None (occurrence: None)
  Receive Date: 20060303
  Receipt Date: 20060222
  Transmission Date: 20060701
  Serious: Yes (Hospitalization)
  Sender: FDA-Public Use
  Company Number: 2006AC00313

PATIENT
  Age: 26635 Day
  Sex: Male
  Weight: 89 kg

DRUGS (8)
  1. CRESTOR [Suspect]
     Indication: CORONARY ARTERY RESTENOSIS
     Route: 048
     Dates: start: 20050901, end: 20060109
  2. EZETROL [Suspect]
     Indication: CORONARY ARTERY RESTENOSIS
     Route: 048
     Dates: start: 20050623, end: 20060109
  3. NITROFURANTOINUM [Suspect]
     Indication: CORONARY ARTERY RESTENOSIS
     Route: 048
     Dates: start: 20050412, end: 20060109
  4. AMARYL [Concomitant]
     Route: 048
     Dates: start: 20011005
  5. AVANDIA [Concomitant]
     Route: 048
     Dates: start: 20030722
  6. ASCAL [Concomitant]
  7. PLAQUENIL [Concomitant]
  8. SELOKEEN ZOC [Concomitant]
     Route: 048

REACTIONS (1)
  - HEPATITIS CHOLESTATIC [None]
